FAERS Safety Report 6763144-5 (Version None)
Quarter: 2010Q2

REPORT INFORMATION
  Report Type: 
  Country: None (occurrence: None)
  Receive Date: 20100608
  Receipt Date: 20100608
  Transmission Date: 20101027
  Serious: Yes (Hospitalization)
  Sender: FDA-Public Use
  Company Number: None

PATIENT
  Age: 50 Year
  Sex: Male
  Weight: 96.2 kg

DRUGS (1)
  1. PREDNISONE [Suspect]
     Indication: PAIN
     Dosage: 40 MG EVERY DAY PO
     Route: 048
     Dates: start: 20100402, end: 20100402

REACTIONS (3)
  - HAEMATEMESIS [None]
  - HAEMORRHAGE [None]
  - URINE OUTPUT DECREASED [None]
